FAERS Safety Report 9664054 (Version 1)
Quarter: 2013Q4

REPORT INFORMATION
  Report Type: Spontaneous
  Country: IT (occurrence: IT)
  Receive Date: 20131101
  Receipt Date: 20131101
  Transmission Date: 20140711
  Serious: Yes (Death)
  Sender: FDA-Public Use
  Company Number: IT-ASTRAZENECA-2013SE79109

PATIENT
  Age: 14143 Day
  Sex: Female
  Weight: 70 kg

DRUGS (7)
  1. PROPOFOL [Suspect]
     Indication: ABORTION INDUCED
     Route: 042
     Dates: start: 20131003, end: 20131003
  2. FENTANYL HAMELN (FENTANYL) [Suspect]
     Indication: ABORTION INDUCED
     Dosage: 50 MCG/ML SOLUTION FOR INJECTION, 100 MCG ONCE
     Route: 042
     Dates: start: 20131003, end: 20131003
  3. CERVIDIL ( GEMEPROST) [Suspect]
     Indication: ABORTION INDUCED
     Dosage: 1MG  VAGINAL SUPPOSITORY, 1 DF ONCE
     Route: 067
     Dates: start: 20131003, end: 20131003
  4. PLASIL (METOCLOPRAMIDE) [Suspect]
     Indication: NAUSEA
     Dosage: 10 MG/2ML SOLUTION FOR INJECTION, 1 DF ONCE
     Route: 041
     Dates: start: 20131003, end: 20131003
  5. ZANTAC (RANITIDINE) [Suspect]
     Indication: NAUSEA
     Dosage: 50 MG/5ML SOLUTION FOR INJECTION, 1 DF ONCE
     Route: 041
     Dates: start: 20131003, end: 20131003
  6. TORA-DOL (KETOROLAC) [Suspect]
     Indication: ABDOMINAL PAIN
     Dosage: 10 MG/ML SOLUTION FOR INJECTION, 1 DF ONCE
     Route: 042
     Dates: start: 20131003, end: 20131003
  7. PARACETAMOL [Concomitant]
     Indication: PROCEDURAL PAIN
     Dates: start: 20131003, end: 20131003

REACTIONS (2)
  - Arrhythmia [Fatal]
  - Cardio-respiratory arrest [Fatal]
